FAERS Safety Report 6849127-5 (Version None)
Quarter: 2010Q3

REPORT INFORMATION
  Report Type: 
  Country: None (occurrence: None)
  Receive Date: 20100716
  Receipt Date: 20100628
  Transmission Date: 20110219
  Serious: Yes (Hospitalization)
  Sender: FDA-Public Use
  Company Number: PHHY2010TW42042

PATIENT
  Sex: Female
  Weight: 58 kg

DRUGS (1)
  1. ACLASTA/ZOLEDRONATE T29581+A++OS [Suspect]
     Indication: OSTEOPOROSIS
     Dosage: 5 MG
     Route: 042
     Dates: start: 20100225

REACTIONS (3)
  - GASTRIC ULCER [None]
  - HYPOGLYCAEMIA [None]
  - PNEUMONIA [None]
